FAERS Safety Report 16297200 (Version 2)
Quarter: 2019Q2

REPORT INFORMATION
  Report Type: Spontaneous
  Country: CO (occurrence: CO)
  Receive Date: 20190510
  Receipt Date: 20190524
  Transmission Date: 20190711
  Serious: Yes (Life-Threatening, Hospitalization, Other)
  Sender: FDA-Public Use
  Company Number: CO-AUROBINDO-AUR-APL-2019-026095

PATIENT

DRUGS (8)
  1. LEVOTHYROXINE. [Concomitant]
     Active Substance: LEVOTHYROXINE
     Indication: HYPERTHYROIDISM
     Dosage: 50 MICROGRAM, ONCE A DAY
     Route: 065
  2. QUETIAPINE TABLET [Suspect]
     Active Substance: QUETIAPINE
     Indication: DEMENTIA
     Dosage: 125 MILLIGRAM, ONCE A DAY, 1 TABLET IN THE MORNING AND 4 TABLETS IN THE NIGHT
     Route: 048
     Dates: start: 20190203, end: 20190206
  3. DUTASTERIDE. [Concomitant]
     Active Substance: DUTASTERIDE
     Indication: BENIGN PROSTATIC HYPERPLASIA
     Dosage: UNK
     Route: 065
  4. SERTRALINE [Concomitant]
     Active Substance: SERTRALINE HYDROCHLORIDE
     Indication: DEMENTIA
     Dosage: 50 MILLIGRAM, ONCE A DAY
     Route: 065
  5. PREGABALIN. [Concomitant]
     Active Substance: PREGABALIN
     Indication: DEMENTIA
     Dosage: 75 MILLIGRAM, ONCE A DAY
     Route: 065
  6. QUETIAPINE TABLET [Suspect]
     Active Substance: QUETIAPINE
     Dosage: 150 MILLIGRAM, ONCE A DAY
     Route: 065
     Dates: start: 20190203
  7. PRAZOSIN. [Concomitant]
     Active Substance: PRAZOSIN
     Indication: BENIGN PROSTATIC HYPERPLASIA
     Dosage: 1 MILLIGRAM, ONCE A DAY
     Route: 065
  8. MEMANTINE. [Concomitant]
     Active Substance: MEMANTINE
     Indication: DEMENTIA
     Dosage: 20 MILLIGRAM, ONCE A DAY
     Route: 065

REACTIONS (5)
  - Inappropriate antidiuretic hormone secretion [Recovered/Resolved]
  - Blood pressure decreased [Recovered/Resolved]
  - Soft tissue injury [Recovered/Resolved]
  - Craniocerebral injury [Recovered/Resolved]
  - Loss of consciousness [Recovered/Resolved]

NARRATIVE: CASE EVENT DATE: 201902
